FAERS Safety Report 7325708-X (Version None)
Quarter: 2011Q1

REPORT INFORMATION
  Report Type: 
  Country: None (occurrence: None)
  Receive Date: 20110302
  Receipt Date: 20110223
  Transmission Date: 20110831
  Serious: No
  Sender: FDA-Public Use
  Company Number: US-ROXANE LABORATORIES, INC.-2011-RO-00233RO

PATIENT
  Sex: Male

DRUGS (1)
  1. METHADONE [Suspect]
     Indication: BACK PAIN
     Route: 048
     Dates: start: 20100901

REACTIONS (3)
  - SKIN BURNING SENSATION [None]
  - SKIN EXFOLIATION [None]
  - RASH [None]
